FAERS Safety Report 10183972 (Version 1)
Quarter: 2014Q2

REPORT INFORMATION
  Report Type: Spontaneous
  Country: US (occurrence: US)
  Receive Date: 20140520
  Receipt Date: 20140520
  Transmission Date: 20141212
  Serious: Yes (Hospitalization, Other)
  Sender: FDA-Public Use
  Company Number: US-ACTAVIS-2014-10285

PATIENT
  Age: 43 Year
  Sex: Male

DRUGS (6)
  1. AZATHIOPRINE (UNKNOWN) [Suspect]
     Indication: CROHN^S DISEASE
     Dosage: UNK
     Route: 065
  2. AZATHIOPRINE (UNKNOWN) [Suspect]
     Dosage: 400 MG, DAILY
     Route: 065
  3. PREDNISONE (WATSON LABORATORIES) [Suspect]
     Indication: CROHN^S DISEASE
     Dosage: UNK
     Route: 065
  4. PREDNISONE (WATSON LABORATORIES) [Suspect]
     Dosage: 40 MG, DAILY
     Route: 065
  5. REMICADE [Suspect]
     Indication: CROHN^S DISEASE
     Dosage: 10 MG/KG, UNK EVERY 8 WEEKS
     Route: 065
  6. REMICADE [Suspect]
     Dosage: 10 MG/KG, UNK, EVERY 6 WEEKS
     Route: 065

REACTIONS (1)
  - Histoplasmosis disseminated [Recovering/Resolving]
